FAERS Safety Report 5329557-3 (Version None)
Quarter: 2007Q1

REPORT INFORMATION
  Report Type: 
  Country: None (occurrence: None)
  Receive Date: 20070227
  Receipt Date: 20061031
  Transmission Date: 20070707
  Serious: Yes (Other)
  Sender: FDA-Public Use
  Company Number: 469743

PATIENT
  Age: 15 Year
  Sex: Male
  Weight: 56.7 kg

DRUGS (1)
  1. ACCUTANE [Suspect]
     Indication: ACNE CYSTIC
     Dosage: 60 MG DAILY ORAL
     Route: 048
     Dates: start: 20011015, end: 20020313

REACTIONS (6)
  - ARTHRALGIA [None]
  - BONE PAIN [None]
  - COLITIS ULCERATIVE [None]
  - EXFOLIATIVE RASH [None]
  - INFLAMMATORY BOWEL DISEASE [None]
  - RASH ERYTHEMATOUS [None]
